FAERS Safety Report 8167984-X (Version None)
Quarter: 2012Q1

REPORT INFORMATION
  Report Type: 
  Country: None (occurrence: None)
  Receive Date: 20120227
  Receipt Date: 20120220
  Transmission Date: 20120608
  Serious: Yes (Other)
  Sender: FDA-Public Use
  Company Number: JP-GLAXOSMITHKLINE-B0783125A

PATIENT

DRUGS (1)
  1. RELENZA [Suspect]
     Indication: INFLUENZA
     Dosage: 20MG PER DAY
     Route: 055

REACTIONS (5)
  - FEBRILE CONVULSION [None]
  - SYNCOPE [None]
  - EPILEPSY [None]
  - CONVULSION [None]
  - LOSS OF CONSCIOUSNESS [None]
